FAERS Safety Report 6493913-0 (Version None)
Quarter: 2009Q4

REPORT INFORMATION
  Report Type: 
  Country: None (occurrence: None)
  Receive Date: 20091214
  Receipt Date: 20081121
  Transmission Date: 20100525
  Serious: Yes (Hospitalization)
  Sender: FDA-Public Use
  Company Number: US-BRISTOL-MYERS SQUIBB COMPANY-14416572

PATIENT
  Age: 72 Year
  Sex: Female
  Weight: 63 kg

DRUGS (2)
  1. ABILIFY [Suspect]
     Indication: BIPOLAR DISORDER
     Dosage: ABILIFY (POSSIBLY 6 MG) TAKEN ABOUT 3-4 MONTHS AGO.
  2. KLONOPIN [Concomitant]

REACTIONS (4)
  - CONFUSIONAL STATE [None]
  - DEPRESSION [None]
  - MANIA [None]
  - MEMORY IMPAIRMENT [None]
